FAERS Safety Report 10251847 (Version 2)
Quarter: 2021Q1

REPORT INFORMATION
  Report Type: Report from Study
  Country: BR (occurrence: BR)
  Receive Date: 20140623
  Receipt Date: 20210111
  Transmission Date: 20210419
  Serious: No
  Sender: FDA-Public Use
  Company Number: BR-SHIRE-BR201403130

PATIENT
  Age: 9 Year
  Sex: Male
  Weight: 33.9 kg

DRUGS (1)
  1. IDURSULFASE [Suspect]
     Active Substance: IDURSULFASE
     Indication: MUCOPOLYSACCHARIDOSIS II
     Dosage: 0.5 MILLIGRAM/KILOGRAM, 1/WEEK
     Route: 041
     Dates: start: 20110525

REACTIONS (1)
  - Hyperthermia [Recovered/Resolved]

NARRATIVE: CASE EVENT DATE: 20140616
